FAERS Safety Report 21782940 (Version 1)
Quarter: 2022Q4

REPORT INFORMATION
  Report Type: Report from Study
  Country: US (occurrence: US)
  Receive Date: 20221227
  Receipt Date: 20221227
  Transmission Date: 20230113
  Serious: No
  Sender: FDA-Public Use
  Company Number: US-ABBVIE-4212031

PATIENT
  Sex: Female

DRUGS (17)
  1. HUMIRA [Suspect]
     Active Substance: ADALIMUMAB
     Indication: Rheumatoid arthritis
     Route: 058
  2. FOLIC ACID TAB 800MCG [Concomitant]
     Indication: Product used for unknown indication
     Route: 065
  3. DULOXETINE H CPE 60MG [Concomitant]
     Indication: Product used for unknown indication
     Route: 065
  4. BUSPIRONE HC TAB 30MG [Concomitant]
     Indication: Product used for unknown indication
     Route: 065
  5. OXCARBAZEPIN TAB 300MG [Concomitant]
     Indication: Product used for unknown indication
     Route: 065
  6. TRELEGY ELLI AEP [Concomitant]
     Indication: Product used for unknown indication
     Dosage: TRELEGY ELLI AEP 200-62.5
     Route: 065
  7. TRAZODONE HC TAB 150MG [Concomitant]
     Indication: Product used for unknown indication
     Route: 065
  8. ENALAPRIL MA TAB 20MG [Concomitant]
     Indication: Product used for unknown indication
     Route: 065
  9. GABAPENTIN TAB 800MG [Concomitant]
     Indication: Product used for unknown indication
     Route: 065
  10. MONTELUKAST [Concomitant]
     Active Substance: MONTELUKAST SODIUM
     Indication: Product used for unknown indication
     Route: 065
  11. ALBUTEROL [Concomitant]
     Active Substance: ALBUTEROL
     Indication: Product used for unknown indication
     Dosage: ALBUTEROL SU NEB 2.5MG/0
     Route: 065
  12. OMEPRAZOLE CPD 40MG [Concomitant]
     Indication: Product used for unknown indication
     Route: 065
  13. CYCLOBENZAPR TAB 10MG [Concomitant]
     Indication: Product used for unknown indication
     Route: 065
  14. METHOTREXATE [Concomitant]
     Active Substance: METHOTREXATE
     Indication: Product used for unknown indication
     Route: 065
  15. BIOTIN TAB 1000MCG [Concomitant]
     Indication: Product used for unknown indication
     Route: 065
  16. LINZESS CAP 72MCG [Concomitant]
     Indication: Product used for unknown indication
     Route: 065
  17. HYDRALAZINE [Concomitant]
     Active Substance: HYDRALAZINE HYDROCHLORIDE
     Indication: Product used for unknown indication
     Route: 065

REACTIONS (1)
  - Depression [Unknown]
